FAERS Safety Report 18398300 (Version 1)
Quarter: 2020Q4

REPORT INFORMATION
  Report Type: Spontaneous
  Country: US (occurrence: US)
  Receive Date: 20201019
  Receipt Date: 20201019
  Transmission Date: 20210114
  Serious: Yes (Hospitalization)
  Sender: FDA-Public Use
  Company Number: None

PATIENT
  Age: 61 Year
  Sex: Male
  Weight: 74.39 kg

DRUGS (1)
  1. AMOXICILLIN/CLAVULANATE (AMOXICILLIN TRIHYDRATE 875MG/CLAVULANATE K 125MG TAB) [Suspect]
     Active Substance: AMOXICILLIN\CLAVULANATE POTASSIUM
     Indication: PERIORBITAL CELLULITIS
     Route: 048
     Dates: start: 20200709, end: 20200710

REACTIONS (10)
  - Syncope [None]
  - Pruritus [None]
  - Nausea [None]
  - Dyspepsia [None]
  - Dizziness [None]
  - Erythema [None]
  - Vomiting [None]
  - Fall [None]
  - Hypersensitivity [None]
  - Hypotension [None]

NARRATIVE: CASE EVENT DATE: 20200710
